FAERS Safety Report 8357363-4 (Version None)
Quarter: 2012Q2

REPORT INFORMATION
  Report Type: 
  Country: None (occurrence: None)
  Receive Date: 20120514
  Receipt Date: 20120504
  Transmission Date: 20120825
  Serious: Yes (Hospitalization)
  Sender: FDA-Public Use
  Company Number: FR-EISAI INC-E3810-05499-SPO-FR

PATIENT
  Sex: Male

DRUGS (12)
  1. FOLIC ACID [Concomitant]
  2. FERROUS SULFATE TAB [Concomitant]
  3. ALLOPURINOL [Concomitant]
  4. FUNGIZONE [Concomitant]
  5. ATORVASTATIN [Concomitant]
  6. ALLOPURINOL [Concomitant]
  7. CALCIPARINE [Concomitant]
  8. LEVOFLOXACIN [Concomitant]
  9. BISOPROLOL FUMARATE [Concomitant]
  10. ACETAMINOPHEN [Concomitant]
  11. DIGOXIN [Concomitant]
  12. RABEPRAZOLE SODIUM [Suspect]
     Route: 048
     Dates: start: 20120308, end: 20120315

REACTIONS (1)
  - HYPONATRAEMIA [None]
